FAERS Safety Report 9639148 (Version 2)
Quarter: 2013Q4

REPORT INFORMATION
  Report Type: Spontaneous
  Country: US (occurrence: None)
  Receive Date: 20131021
  Receipt Date: 20131105
  Transmission Date: 20140711
  Serious: Yes (Other)
  Sender: FDA-Public Use
  Company Number: US-ALKEM-000197

PATIENT
  Age: 44 Year
  Sex: Male

DRUGS (2)
  1. QUETIAPINE (QUETIAPINE) [Suspect]
     Indication: AFFECTIVE DISORDER
  2. BOCEPREVIR [Suspect]
     Indication: BENIGN PROSTATIC HYPERPLASIA

REACTIONS (2)
  - Priapism [None]
  - Drug interaction [None]
